FAERS Safety Report 5712020-5 (Version None)
Quarter: 2008Q2

REPORT INFORMATION
  Report Type: 
  Country: None (occurrence: None)
  Receive Date: 20080417
  Receipt Date: 20080402
  Transmission Date: 20081010
  Serious: Yes (Other)
  Sender: FDA-Public Use
  Company Number: 2008000347

PATIENT
  Age: 56 Year
  Sex: Female

DRUGS (12)
  1. ERLOTINIB(ERLOTINIB)(TABLET)(ERLOTINIB) [Suspect]
     Indication: LUNG ADENOCARCINOMA
     Dosage: (150 MG,QD),ORAL ; (100 MG, QD), ORAL
     Route: 048
     Dates: start: 20080110, end: 20080116
  2. ERLOTINIB(ERLOTINIB)(TABLET)(ERLOTINIB) [Suspect]
     Indication: LUNG ADENOCARCINOMA
     Dosage: (150 MG,QD),ORAL ; (100 MG, QD), ORAL
     Route: 048
     Dates: start: 20080121
  3. ALDACTONE [Concomitant]
  4. CYTOTEC [Concomitant]
  5. VOLTAREN [Concomitant]
  6. HOCHU-EKKI-TO [Concomitant]
  7. LASIX [Concomitant]
  8. MEXITIL [Concomitant]
  9. METHYCOBAL (MECOBALAMIN) [Concomitant]
  10. NOVAMIN (PROCHLORPERAZINE) [Concomitant]
  11. MAGNESIUM HYDROXIDE TAB [Concomitant]
  12. OXYCONTIN [Concomitant]

REACTIONS (1)
  - TUMOUR LYSIS SYNDROME [None]
